FAERS Safety Report 9450144 (Version 1)
Quarter: 2013Q3

REPORT INFORMATION
  Report Type: Spontaneous
  Country: CN (occurrence: CN)
  Receive Date: 20130809
  Receipt Date: 20130809
  Transmission Date: 20140515
  Serious: Yes (Other)
  Sender: FDA-Public Use
  Company Number: CN-009507513-1308CHN002855

PATIENT
  Sex: Male

DRUGS (2)
  1. SINGULAIR [Suspect]
     Dosage: UNK
     Route: 048
     Dates: start: 2009
  2. SERETIDE [Concomitant]
     Route: 048

REACTIONS (1)
  - Epilepsy [Unknown]
